FAERS Safety Report 9503014 (Version 1)
Quarter: 2013Q3

REPORT INFORMATION
  Report Type: Spontaneous
  Country: US (occurrence: US)
  Receive Date: 20130906
  Receipt Date: 20130906
  Transmission Date: 20140515
  Serious: Yes (Other)
  Sender: FDA-Public Use
  Company Number: US-ASTELLAS-2013US009279

PATIENT
  Sex: Male
  Weight: 90 kg

DRUGS (5)
  1. VESICARE [Suspect]
     Indication: PRODUCT USED FOR UNKNOWN INDICATION
     Dosage: 1 DF, QHS
     Route: 048
     Dates: start: 20130827
  2. TAMSULOSIN [Concomitant]
     Indication: PROSTATIC DISORDER
     Dosage: UNK
     Route: 065
  3. CARBIDOPA-LEVODOPA [Concomitant]
     Indication: PARKINSON^S DISEASE
     Dosage: 35100 MG, UID/QD
     Route: 048
  4. ARICEPT [Concomitant]
     Indication: DEMENTIA
     Dosage: 5 MG, UID/QD
     Route: 048
  5. NAMENDA [Concomitant]
     Indication: DEMENTIA
     Dosage: 10 MG, BID
     Route: 048

REACTIONS (3)
  - Abasia [Not Recovered/Not Resolved]
  - Dysstasia [Not Recovered/Not Resolved]
  - Speech disorder [Recovering/Resolving]
